FAERS Safety Report 8925188 (Version 1)
Quarter: 2012Q4

REPORT INFORMATION
  Report Type: 
  Country: US (occurrence: US)
  Receive Date: 20121126
  Receipt Date: 20121126
  Transmission Date: 20130627
  Serious: No
  Sender: FDA-Public Use
  Company Number: US-VERTEX PHARMACEUTICAL INC.-2012-024935

PATIENT
  Age: 57 None
  Sex: Male
  Weight: 84 kg

DRUGS (5)
  1. INCIVEK [Suspect]
     Indication: HEPATITIS C
     Dosage: 750 mg, tid
     Route: 048
     Dates: start: 20120921
  2. RIBAVIRIN [Suspect]
     Indication: HEPATITIS C
     Dosage: 600 mg am, 400 mg pm
     Route: 048
     Dates: start: 2012
  3. RIBAVIRIN [Suspect]
     Dosage: 400 mg am, 200 mg pm
     Route: 048
     Dates: start: 201211
  4. PEGASYS [Suspect]
     Indication: HEPATITIS C
     Dosage: 180 ?g, week
     Route: 058
     Dates: start: 2012
  5. PEGASYS [Suspect]
     Dosage: 80 ?g, week
     Route: 058
     Dates: start: 201211

REACTIONS (2)
  - Inappropriate schedule of drug administration [Unknown]
  - Anaemia [Not Recovered/Not Resolved]
